FAERS Safety Report 8279288-5 (Version None)
Quarter: 2012Q2

REPORT INFORMATION
  Report Type: 
  Country: None (occurrence: None)
  Receive Date: 20120412
  Receipt Date: 20120402
  Transmission Date: 20120825
  Serious: Yes (Hospitalization)
  Sender: FDA-Public Use
  Company Number: CHPA2012JP006375

PATIENT
  Age: 57 Year
  Sex: Female

DRUGS (1)
  1. SENNOSIDE UNKNOWN MANUFACTURER [Suspect]
     Dosage: 24 MG, QD
     Route: 048

REACTIONS (1)
  - COLITIS [None]
